FAERS Safety Report 18886336 (Version 3)
Quarter: 2021Q1

REPORT INFORMATION
  Report Type: Report from Study
  Country: CA (occurrence: CA)
  Receive Date: 20210212
  Receipt Date: 20210316
  Transmission Date: 20210420
  Serious: Yes (Other)
  Sender: FDA-Public Use
  Company Number: CA-BRISTOL-MYERS SQUIBB COMPANY-BMS-2021-005974

PATIENT
  Age: 75 Year
  Sex: Male

DRUGS (2)
  1. NIVOLUMAB [Suspect]
     Active Substance: NIVOLUMAB
     Indication: HEAD AND NECK CANCER
     Dosage: 154 MILLIGRAM, Q2WK
     Route: 042
     Dates: start: 20201223
  2. NIVOLUMAB [Suspect]
     Active Substance: NIVOLUMAB
     Dosage: 750 MILLIGRAM, Q4WK
     Route: 042

REACTIONS (9)
  - Heart rate decreased [Recovered/Resolved]
  - Diarrhoea [Not Recovered/Not Resolved]
  - Oxygen saturation decreased [Unknown]
  - Prescribed overdose [Unknown]
  - Throat cancer [Unknown]
  - Hypoacusis [Unknown]
  - Blood pressure diastolic decreased [Unknown]
  - Oral pain [Unknown]
  - Weight decreased [Unknown]

NARRATIVE: CASE EVENT DATE: 20201223
